FAERS Safety Report 5804170-X (Version None)
Quarter: 2008Q3

REPORT INFORMATION
  Report Type: 
  Country: None (occurrence: None)
  Receive Date: 20080707
  Receipt Date: 20080624
  Transmission Date: 20090109
  Serious: Yes (Other)
  Sender: FDA-Public Use
  Company Number: 2008AP000603

PATIENT
  Age: 43 Year
  Sex: Male

DRUGS (7)
  1. PAROXETINE HCL [Suspect]
     Dosage: 20 MG; PO; QD
     Route: 048
     Dates: start: 19980401, end: 19980508
  2. PAROXETINE HCL [Suspect]
     Dosage: 20 MG; PO; QD
     Route: 048
     Dates: start: 19970530
  3. PAROXETINE HCL [Suspect]
     Dosage: 20 MG; PO; QD
     Route: 048
     Dates: start: 19970701
  4. PAROXETINE HCL [Suspect]
     Dosage: 20 MG; PO; QD
     Route: 048
     Dates: start: 20060522
  5. PAROXETINE HCL [Suspect]
     Dosage: 20 MG; PO; QD; 40 MG; QD; 10 MG; PO; QD
     Route: 048
     Dates: start: 19980530
  6. DIAZEPAM [Concomitant]
  7. PROPRANOLOL [Concomitant]

REACTIONS (41)
  - ADVERSE DRUG REACTION [None]
  - AGITATION [None]
  - ALCOHOL USE [None]
  - ANXIETY [None]
  - CONFUSIONAL STATE [None]
  - DEPRESSED LEVEL OF CONSCIOUSNESS [None]
  - DIARRHOEA [None]
  - DISTURBANCE IN ATTENTION [None]
  - DIZZINESS [None]
  - DRUG DEPENDENCE [None]
  - DRUG INEFFECTIVE [None]
  - DRUG WITHDRAWAL SYNDROME [None]
  - DYSGEUSIA [None]
  - ERECTILE DYSFUNCTION [None]
  - FALL [None]
  - FATIGUE [None]
  - FEELING ABNORMAL [None]
  - FEELINGS OF WORTHLESSNESS [None]
  - HEARING IMPAIRED [None]
  - HYPERHIDROSIS [None]
  - HYPERVENTILATION [None]
  - ILL-DEFINED DISORDER [None]
  - INCOHERENT [None]
  - INFLUENZA [None]
  - IRRITABILITY [None]
  - LETHARGY [None]
  - MEMORY IMPAIRMENT [None]
  - MIDDLE INSOMNIA [None]
  - MOOD SWINGS [None]
  - NAUSEA [None]
  - NIGHTMARE [None]
  - PARAESTHESIA [None]
  - SENSORY DISTURBANCE [None]
  - SLEEP DISORDER [None]
  - SOCIAL AVOIDANT BEHAVIOUR [None]
  - SUICIDAL IDEATION [None]
  - SYNCOPE [None]
  - TENSION [None]
  - TREMOR [None]
  - VERTIGO [None]
  - VOMITING [None]
